FAERS Safety Report 10651750 (Version 3)
Quarter: 2015Q2

REPORT INFORMATION
  Report Type: Spontaneous
  Country: US (occurrence: US)
  Receive Date: 20141215
  Receipt Date: 20150522
  Transmission Date: 20150821
  Serious: Yes (Hospitalization, Other)
  Sender: FDA-Public Use
  Company Number: US-PFIZER INC-2014335722

PATIENT
  Age: 74 Year
  Sex: Female
  Weight: 91 kg

DRUGS (11)
  1. DIOVAN [Concomitant]
     Active Substance: VALSARTAN
     Dosage: 1 DF, DAILY
     Dates: start: 2008
  2. DOXIFEN [Concomitant]
     Dosage: 175 MG (TWO 75 MG AND ONE 25 MG PILLS), DAILY
     Dates: start: 1980
  3. AMBIEN [Concomitant]
     Active Substance: ZOLPIDEM TARTRATE
     Dosage: 10 MG, DAILY
     Dates: start: 2008
  4. ALLOPURINOL. [Concomitant]
     Active Substance: ALLOPURINOL
     Dosage: 1 DF, DAILY
     Dates: start: 1980
  5. FIORINAL [Concomitant]
     Active Substance: ASPIRIN\BUTALBITAL\CAFFEINE
     Indication: HEADACHE
     Dosage: 1 DF, 4X/DAY
     Dates: start: 1978
  6. LYRICA [Suspect]
     Active Substance: PREGABALIN
     Indication: NEUROPATHY PERIPHERAL
     Dosage: 150 MG, 4X/DAY
     Dates: start: 2008
  7. DILTIAZEM [Concomitant]
     Active Substance: DILTIAZEM
     Dosage: 2 DF, DAILY
     Dates: start: 2008
  8. LYRICA [Suspect]
     Active Substance: PREGABALIN
     Indication: POST HERPETIC NEURALGIA
     Dosage: 50 MG, 4X/DAY
     Dates: start: 200808
  9. LYRICA [Suspect]
     Active Substance: PREGABALIN
     Dosage: 75 MG, 4X/DAY
     Dates: start: 2008
  10. LEVOTHYROXINE [Concomitant]
     Active Substance: LEVOTHYROXINE
     Dosage: 1 DF, DAILY
     Dates: start: 1966
  11. LOVASTATIN. [Concomitant]
     Active Substance: LOVASTATIN
     Dosage: 1 DF, DAILY
     Dates: start: 1970

REACTIONS (4)
  - Ankle fracture [Recovering/Resolving]
  - Sciatic nerve injury [Recovered/Resolved]
  - Fall [Recovering/Resolving]
  - Foot fracture [Unknown]

NARRATIVE: CASE EVENT DATE: 2008
